FAERS Safety Report 4342394-1 (Version None)
Quarter: 2004Q2

REPORT INFORMATION
  Report Type: 
  Country: None (occurrence: None)
  Receive Date: 20040421
  Receipt Date: 20040413
  Transmission Date: 20050107
  Serious: Yes (Hospitalization)
  Sender: FDA-Public Use
  Company Number: PHRM2004FR01509

PATIENT
  Age: 57 Year
  Sex: Male

DRUGS (3)
  1. TEGRETOL [Suspect]
     Indication: EPILEPSY
     Dosage: 400 MG, BID
     Route: 048
     Dates: start: 19991215, end: 20040225
  2. DOTAREM [Suspect]
     Indication: NUCLEAR MAGNETIC RESONANCE IMAGING
     Route: 042
     Dates: start: 20040221, end: 20040221
  3. MAGNEVIST [Suspect]
     Indication: NUCLEAR MAGNETIC RESONANCE IMAGING
     Route: 042
     Dates: start: 20040221, end: 20040221

REACTIONS (9)
  - BODY TEMPERATURE INCREASED [None]
  - C-REACTIVE PROTEIN INCREASED [None]
  - CEREBRAL THROMBOSIS [None]
  - CEREBRAL VENOUS THROMBOSIS [None]
  - FIBRIN D DIMER INCREASED [None]
  - HEADACHE [None]
  - HEMIPLEGIA [None]
  - MENINGEOMAS SURGERY [None]
  - SUBDURAL HYGROMA [None]
